FAERS Safety Report 9343362 (Version 3)
Quarter: 2013Q3

REPORT INFORMATION
  Report Type: Spontaneous
  Country: US (occurrence: US)
  Receive Date: 20130612
  Receipt Date: 20130823
  Transmission Date: 20140515
  Serious: Yes (Other)
  Sender: FDA-Public Use
  Company Number: US-AMGEN-USASP2013040762

PATIENT
  Age: 39 Year
  Sex: Female
  Weight: 47.17 kg

DRUGS (6)
  1. ENBREL [Suspect]
     Indication: PRODUCT USED FOR UNKNOWN INDICATION
     Dosage: 50 MG, QWK
     Route: 058
  2. IBUPROFEN [Concomitant]
     Dosage: 200 MG, UNK
  3. METHOTREXATE [Concomitant]
     Dosage: 1 G, UNK
  4. FOLIC ACID [Concomitant]
     Dosage: 20 MG, UNK
  5. SIMPLY SLEEP [Concomitant]
     Dosage: 25 MG, UNK
  6. LORTAB                             /00607101/ [Concomitant]
     Dosage: 7.5 MG, UNK

REACTIONS (6)
  - Urinary tract infection [Recovered/Resolved]
  - Pyrexia [Recovered/Resolved]
  - Mobility decreased [Recovered/Resolved]
  - Pain [Recovered/Resolved]
  - Chills [Recovered/Resolved]
  - Fatigue [Recovered/Resolved]
